FAERS Safety Report 5138843-1 (Version None)
Quarter: 2006Q4

REPORT INFORMATION
  Report Type: 
  Country: None (occurrence: None)
  Receive Date: 20061030
  Receipt Date: 20060502
  Transmission Date: 20070319
  Serious: No
  Sender: FDA-Public Use
  Company Number: US-GLAXOSMITHKLINE-A0604052A

PATIENT
  Sex: Male

DRUGS (15)
  1. ADVAIR HFA [Suspect]
     Indication: ASTHMA
     Dosage: 1PUFF TWICE PER DAY
     Route: 055
  2. PREDNISONE TAB [Concomitant]
  3. LIPITOR [Concomitant]
  4. DITROPAN XL [Concomitant]
  5. ASTELIN [Concomitant]
  6. PAXIL [Concomitant]
  7. ATACAND [Concomitant]
  8. INDAPAMIDE [Concomitant]
  9. SECTRAL [Concomitant]
  10. LEVOXYL [Concomitant]
  11. MAVIK [Concomitant]
  12. AVANDIA [Concomitant]
  13. IMDUR [Concomitant]
  14. PLAVIX [Concomitant]
  15. ISOSORBIDE [Concomitant]

REACTIONS (1)
  - SWELLING FACE [None]
